FAERS Safety Report 20643142 (Version 3)
Quarter: 2022Q2

REPORT INFORMATION
  Report Type: Spontaneous
  Country: IE (occurrence: IE)
  Receive Date: 20220328
  Receipt Date: 20220523
  Transmission Date: 20220721
  Serious: Yes (Hospitalization, Disabling, Other)
  Sender: FDA-Public Use
  Company Number: None

PATIENT
  Age: 14 Year
  Sex: Female

DRUGS (35)
  1. ARIPIPRAZOLE [Interacting]
     Active Substance: ARIPIPRAZOLE
     Indication: Autism spectrum disorder
     Dosage: 5 MG (ONE TABLET TWICE DAILY AND HALF AT NIGHT)
     Route: 048
     Dates: start: 20191109
  2. ARIPIPRAZOLE [Interacting]
     Active Substance: ARIPIPRAZOLE
     Indication: Agitation
     Dosage: 7.5 MG
     Route: 048
     Dates: start: 20190717
  3. ARIPIPRAZOLE [Interacting]
     Active Substance: ARIPIPRAZOLE
     Dosage: UNK
     Route: 048
     Dates: start: 20200131, end: 20200519
  4. DIAZEPAM [Suspect]
     Active Substance: DIAZEPAM
     Indication: Depressed mood
     Dosage: 2 MG, TID, PRN- NEARLY EVERY SCHOOL DAY)
     Route: 048
     Dates: start: 20191119, end: 20200115
  5. DIAZEPAM [Suspect]
     Active Substance: DIAZEPAM
     Indication: Anxiety
  6. FLUOXETINE [Interacting]
     Active Substance: FLUOXETINE HYDROCHLORIDE
     Indication: Depressed mood
     Dosage: 10 MG, QD (2.5ML (10MG) IN THE MORNING)
     Route: 048
     Dates: start: 20191109
  7. FLUOXETINE [Interacting]
     Active Substance: FLUOXETINE HYDROCHLORIDE
     Dosage: 30 MG, QD (PROZAC ORAL SOLUTION 7.5ML
     Route: 065
     Dates: start: 20191122
  8. FLUOXETINE [Interacting]
     Active Substance: FLUOXETINE HYDROCHLORIDE
     Indication: Depressed mood
     Dosage: 20 MG (PROZAC CAPSULES 20MG)
     Route: 065
     Dates: start: 20191119
  9. FLUOXETINE [Interacting]
     Active Substance: FLUOXETINE HYDROCHLORIDE
     Dosage: 20 MG, QD (PROZAMEL 20MG,TWO CAPSULES IN THE MORNING)
     Route: 065
     Dates: start: 20200905
  10. FLUOXETINE [Interacting]
     Active Substance: FLUOXETINE HYDROCHLORIDE
     Dosage: 20 MG, QD (FLUZAC 20 MG, TWO CAPSULES IN THE MORNING)
     Route: 065
     Dates: start: 20200519
  11. FLUOXETINE [Interacting]
     Active Substance: FLUOXETINE HYDROCHLORIDE
     Dosage: 20 MG, QD (PROZAMEL 20MG, ONE DAILY)
     Route: 065
     Dates: start: 20201101, end: 20210828
  12. FLUOXETINE [Interacting]
     Active Substance: FLUOXETINE HYDROCHLORIDE
     Dosage: 20 MG, QD (PROZAC CAPSULES 20MG, TWO IN THE MORNING)
     Route: 065
     Dates: start: 20200227, end: 20210828
  13. DROSPIRENONE [Concomitant]
     Active Substance: DROSPIRENONE
     Indication: Product used for unknown indication
     Dosage: STRENGTH 20MCG
     Route: 065
     Dates: start: 20201030
  14. MELATONIN [Concomitant]
     Active Substance: MELATONIN
     Indication: Product used for unknown indication
     Dosage: UNK (ONE OR TWO TO BE TAKEN AT NIGHT)
     Route: 065
     Dates: start: 20200324
  15. MELATONIN [Concomitant]
     Active Substance: MELATONIN
     Dosage: 4 MG, QD (CIRCADIN/MELATONIN ULM: 2 (2MG) CAPSULES AT NIGHT)
     Route: 048
     Dates: start: 20191109
  16. MEFENAMIC ACID [Concomitant]
     Active Substance: MEFENAMIC ACID
     Indication: Product used for unknown indication
     Dosage: UNK, HALF OR ONE TABLET THREE TIMES DAILY
     Route: 048
     Dates: start: 20200616
  17. RIVOTRIL [Concomitant]
     Active Substance: CLONAZEPAM
     Indication: Product used for unknown indication
     Dosage: 0.5 MG, BID (EVERY 12 HOURS)
     Route: 065
     Dates: start: 20200622
  18. SERTRALINE BLUEFISH [Concomitant]
     Indication: Product used for unknown indication
     Dosage: 50 MG, QD (EVERY 24 HOURS) (INCREASING DOSE)
     Route: 048
     Dates: start: 20191109, end: 20191119
  19. LISDEXAMFETAMINE DIMESYLATE [Concomitant]
     Active Substance: LISDEXAMFETAMINE DIMESYLATE
     Indication: Product used for unknown indication
     Dosage: UNK (IN THE MORNING)
     Route: 065
     Dates: start: 20200623
  20. LISDEXAMFETAMINE DIMESYLATE [Concomitant]
     Active Substance: LISDEXAMFETAMINE DIMESYLATE
     Dosage: UNK (IN THE MORNING)
     Route: 065
     Dates: start: 20200722
  21. LISDEXAMFETAMINE DIMESYLATE [Concomitant]
     Active Substance: LISDEXAMFETAMINE DIMESYLATE
     Dosage: UNK (IN THE MORNING)
     Route: 065
     Dates: start: 20201109
  22. LISDEXAMFETAMINE DIMESYLATE [Concomitant]
     Active Substance: LISDEXAMFETAMINE DIMESYLATE
     Dosage: UNK (IN THE MORNING)
     Route: 065
     Dates: start: 20200710
  23. LISDEXAMFETAMINE DIMESYLATE [Concomitant]
     Active Substance: LISDEXAMFETAMINE DIMESYLATE
     Dosage: UNK (IN THE MORNING)
     Route: 065
     Dates: start: 20010401
  24. ALTAVITA D3 [Concomitant]
     Indication: Product used for unknown indication
     Dosage: UNK (EVERY TWO WEEKS THEN ONCE PER MONTH)
     Route: 065
     Dates: start: 20191204
  25. CLOTRIMAZOLE\HYDROCORTISONE [Concomitant]
     Active Substance: CLOTRIMAZOLE\HYDROCORTISONE
     Indication: Product used for unknown indication
     Dosage: Q8 HRRS THREE TIME DAILY
     Route: 065
     Dates: start: 20201126
  26. CLOTRIMAZOLE\HYDROCORTISONE [Concomitant]
     Active Substance: CLOTRIMAZOLE\HYDROCORTISONE
     Dosage: UNK
     Route: 065
     Dates: start: 20201030
  27. OLANZAPINE [Concomitant]
     Active Substance: OLANZAPINE
     Indication: Product used for unknown indication
     Dosage: UNK (2.5 MG IN THE MORNING, 5 MG AT 5PM)
     Route: 048
     Dates: start: 20200630
  28. CONCERTA [Concomitant]
     Active Substance: METHYLPHENIDATE HYDROCHLORIDE
     Indication: Product used for unknown indication
     Dosage: 36 MG, QD (EVERY 24 HOURS) (IN THE MORNING)
     Route: 065
     Dates: start: 20200602
  29. CONCERTA [Concomitant]
     Active Substance: METHYLPHENIDATE HYDROCHLORIDE
     Dosage: 36 MG, QD (EVERY 24 HOURS) (IN THE MORNING 18MG))
     Route: 065
     Dates: start: 20200228
  30. CONCERTA [Concomitant]
     Active Substance: METHYLPHENIDATE HYDROCHLORIDE
     Dosage: 18 MG, QD (EVERY 24 HOURS) (IN THE MORNING)
     Route: 065
     Dates: start: 20200124
  31. CONCERTA [Concomitant]
     Active Substance: METHYLPHENIDATE HYDROCHLORIDE
     Dosage: 27 MG, QD (EVERY 24 HOURS) (IN THE MORNING 18 MG)
     Route: 065
     Dates: start: 20200316
  32. RITALIN [Concomitant]
     Active Substance: METHYLPHENIDATE HYDROCHLORIDE
     Indication: Product used for unknown indication
     Dosage: 10 MG, QD (IN THE EVENING)
     Route: 065
     Dates: start: 20201009
  33. CHOLECALCIFEROL [Concomitant]
     Active Substance: CHOLECALCIFEROL
     Indication: Product used for unknown indication
     Dosage: 25,000 INTERNATIONAL, EVERY TWO WEEKS THEN ONCE PER MONTH
     Route: 048
  34. DROSPIRENONE\ETHINYL ESTRADIOL [Concomitant]
     Active Substance: DROSPIRENONE\ETHINYL ESTRADIOL
     Indication: Product used for unknown indication
     Dosage: STRENGTH 20MCG
     Route: 065
     Dates: start: 20201030
  35. LISDEXAMFETAMINE DIMESYLATE [Concomitant]
     Active Substance: LISDEXAMFETAMINE DIMESYLATE
     Indication: Product used for unknown indication
     Dosage: IN THE MORNING, 20MG
     Route: 065

REACTIONS (14)
  - Body dysmorphic disorder [Recovered/Resolved]
  - Personality change [Recovered/Resolved]
  - Social anxiety disorder [Recovering/Resolving]
  - Oropharyngeal pain [Recovered/Resolved]
  - Intentional self-injury [Recovered/Resolved]
  - Hyperphagia [Recovered/Resolved]
  - Weight increased [Recovered/Resolved]
  - Hypersexuality [Recovered/Resolved]
  - Impulse-control disorder [Recovered/Resolved]
  - Agitation [Recovered/Resolved]
  - Suicidal ideation [Recovered/Resolved]
  - Drug interaction [Unknown]
  - Theft [Recovered/Resolved]
  - Inappropriate schedule of product administration [Unknown]

NARRATIVE: CASE EVENT DATE: 20190901
